FAERS Safety Report 9049605 (Version 1)
Quarter: 2013Q1

REPORT INFORMATION
  Report Type: Spontaneous
  Country: NO (occurrence: NO)
  Receive Date: 20130205
  Receipt Date: 20130205
  Transmission Date: 20140127
  Serious: Yes (Life-Threatening, Hospitalization, Disabling)
  Sender: FDA-Public Use
  Company Number: NO-ASTRAZENECA-2013SE07403

PATIENT
  Age: 21823 Day
  Sex: Male
  Weight: 88 kg

DRUGS (2)
  1. VIMOVO [Suspect]
     Indication: OSTEOARTHRITIS
     Dosage: DAILY
     Route: 048
     Dates: start: 20120929, end: 20130112
  2. NIFEDIPINE [Concomitant]
     Dosage: LOW DOSE

REACTIONS (1)
  - Cerebellar infarction [Unknown]
